FAERS Safety Report 14186318 (Version 2)
Quarter: 2017Q4

REPORT INFORMATION
  Report Type: Spontaneous
  Country: US (occurrence: US)
  Receive Date: 20171114
  Receipt Date: 20171220
  Transmission Date: 20180321
  Serious: Yes (Death, Life-Threatening, Hospitalization, Other)
  Sender: FDA-Public Use
  Company Number: US-PFIZER INC-2017484269

PATIENT
  Age: 61 Year
  Sex: Male

DRUGS (7)
  1. BIVALIRUDIN. [Suspect]
     Active Substance: BIVALIRUDIN
     Dosage: 1.75 MG/KG, UNK(HOURLY)
     Route: 041
  2. EPTIFIBATIDE. [Concomitant]
     Active Substance: EPTIFIBATIDE
     Indication: STENOSIS
     Dosage: 180 UG/KG, UNK
     Route: 040
  3. AMIODARONE HCL [Concomitant]
     Active Substance: AMIODARONE HYDROCHLORIDE
     Dosage: 1 MG, UNK (INFUSION AT 1 MG/MINUTE)
  4. ASPIRIN. [Concomitant]
     Active Substance: ASPIRIN
     Indication: ACUTE MYOCARDIAL INFARCTION
     Dosage: 325 MG, UNK, (GIVEN THROUGH A NASOGASTRIC TUBE)
     Route: 045
  5. BIVALIRUDIN. [Suspect]
     Active Substance: BIVALIRUDIN
     Indication: STENOSIS
     Dosage: 0.75 MG/KG, UNK, (FOLLOWED BY AN INFUSION AT 1.75 MG/KG/HOUR)
     Route: 040
  6. AMIODARONE HCL [Concomitant]
     Active Substance: AMIODARONE HYDROCHLORIDE
     Indication: STENOSIS
     Dosage: 150 MG, UNK, (LOADING DOSE, FOLLOWED BY AN INFUSION AT 1 MG/MINUTE)
     Route: 042
  7. AMIODARONE HCL [Concomitant]
     Active Substance: AMIODARONE HYDROCHLORIDE
     Dosage: UNK (IV AMIODARONE BOLUS)
     Route: 040

REACTIONS (1)
  - Pulmonary alveolar haemorrhage [Fatal]
